FAERS Safety Report 4338921-0 (Version None)
Quarter: 2004Q2

REPORT INFORMATION
  Report Type: 
  Country: None (occurrence: None)
  Receive Date: 20040409
  Receipt Date: 20040329
  Transmission Date: 20050107
  Serious: Yes (Life-Threatening)
  Sender: FDA-Public Use
  Company Number: IT-SHR-04-023181

PATIENT
  Age: 58 Year
  Sex: Female

DRUGS (1)
  1. BETASERON [Suspect]
     Indication: MULTIPLE SCLEROSIS
     Dosage: 8 MIU/ML, 2X/WEEK, SUBCUTANEOUS
     Route: 058
     Dates: start: 20031121, end: 20040218

REACTIONS (1)
  - ACUTE MYOCARDIAL INFARCTION [None]
